FAERS Safety Report 9638796 (Version 2)
Quarter: 2013Q4

REPORT INFORMATION
  Report Type: Spontaneous
  Country: US (occurrence: US)
  Receive Date: 20131022
  Receipt Date: 20131022
  Transmission Date: 20140711
  Serious: No
  Sender: FDA-Public Use
  Company Number: US-BRISTOL-MYERS SQUIBB COMPANY-19180520

PATIENT
  Age: 86 Year
  Sex: Female

DRUGS (6)
  1. ELIQUIS [Suspect]
     Indication: ATRIAL FIBRILLATION
     Route: 048
     Dates: start: 20130509, end: 20130624
  2. SINEMET [Concomitant]
     Dosage: 1DF=25/100 UNITS NOS
  3. ZETIA [Concomitant]
  4. DILTIAZEM CD [Concomitant]
  5. SPIRONOLACTONE [Concomitant]
     Dosage: 1DF=25 UNITS NOS
  6. LASIX [Concomitant]

REACTIONS (3)
  - Scab [Recovering/Resolving]
  - Petechiae [Recovering/Resolving]
  - Ulcer [Recovering/Resolving]
